FAERS Safety Report 6393112-7 (Version None)
Quarter: 2009Q4

REPORT INFORMATION
  Report Type: 
  Country: None (occurrence: None)
  Receive Date: 20091008
  Receipt Date: 20090930
  Transmission Date: 20100525
  Serious: Yes (Death)
  Sender: FDA-Public Use
  Company Number: US-ASTRAZENECA-2009UW13012

PATIENT
  Age: 62 Year
  Sex: Female

DRUGS (2)
  1. SEROQUEL [Suspect]
     Indication: DEPRESSION
     Route: 048
     Dates: start: 20030101, end: 20080714
  2. XANAX [Concomitant]

REACTIONS (2)
  - DEATH [None]
  - TYPE 2 DIABETES MELLITUS [None]
